FAERS Safety Report 5993648-4 (Version None)
Quarter: 2008Q4

REPORT INFORMATION
  Report Type: 
  Country: None (occurrence: None)
  Receive Date: 20081212
  Receipt Date: 20081211
  Transmission Date: 20090506
  Serious: Yes (Death)
  Sender: FDA-Public Use
  Company Number: PHBS2008JP06652

PATIENT
  Age: 45 Year
  Sex: Male

DRUGS (7)
  1. CYCLOSPORINE [Suspect]
     Indication: CORD BLOOD TRANSPLANT THERAPY
  2. METHOTREXATE [Suspect]
     Indication: GRAFT VERSUS HOST DISEASE
  3. TACROLIMUS [Suspect]
     Indication: GRAFT VERSUS HOST DISEASE
  4. NEUPOGEN [Concomitant]
  5. GANCICLOVIR [Concomitant]
  6. FLUDARABINE PHOSPHATE [Concomitant]
  7. CYCLOPHOSPHAMIDE [Concomitant]

REACTIONS (2)
  - SEPTIC SHOCK [None]
  - SYSTEMIC CANDIDA [None]
